FAERS Safety Report 14269645 (Version 1)
Quarter: 2017Q4

REPORT INFORMATION
  Report Type: Spontaneous
  Country: FR (occurrence: FR)
  Receive Date: 20171211
  Receipt Date: 20171211
  Transmission Date: 20180321
  Serious: Yes (Other)
  Sender: FDA-Public Use
  Company Number: FR-OTSUKA-DJ201400014

PATIENT

DRUGS (8)
  1. ZOPICLONE [Concomitant]
     Active Substance: ZOPICLONE
     Dosage: 1 TABLET DAILY
  2. LEPTICUR [Concomitant]
     Active Substance: TROPATEPINE HYDROCHLORIDE
     Route: 065
  3. SERTRALINE [Concomitant]
     Active Substance: SERTRALINE HYDROCHLORIDE
     Dosage: 200 MG, QD
  4. SERESTA [Concomitant]
     Active Substance: OXAZEPAM
     Route: 065
  5. IMOVANE [Concomitant]
     Active Substance: ZOPICLONE
     Route: 065
  6. ABILIFY [Suspect]
     Active Substance: ARIPIPRAZOLE
     Route: 048
     Dates: start: 201110, end: 201311
  7. LOXAPAC [Concomitant]
     Active Substance: LOXAPINE SUCCINATE
     Route: 065
  8. SERTRALINE [Concomitant]
     Active Substance: SERTRALINE HYDROCHLORIDE
     Route: 065

REACTIONS (1)
  - Gambling disorder [Recovered/Resolved]

NARRATIVE: CASE EVENT DATE: 201201
